FAERS Safety Report 9742918 (Version 3)
Quarter: 2014Q1

REPORT INFORMATION
  Report Type: Spontaneous
  Country: US (occurrence: US)
  Receive Date: 20131210
  Receipt Date: 20140116
  Transmission Date: 20141002
  Serious: Yes (Hospitalization)
  Sender: FDA-Public Use
  Company Number: US-ELI_LILLY_AND_COMPANY-US_020180105

PATIENT
  Age: 41 Year
  Sex: Female
  Weight: 42 kg

DRUGS (6)
  1. PROZAC [Suspect]
     Dosage: 20 MG, DAILY (1/D)
     Route: 048
  2. METHADONE [Concomitant]
     Dosage: UNK, UNKNOWN
  3. LEVOMETHADYL ACETATE HYDROCHLORIDE [Concomitant]
     Dosage: 120 MG, OTHER
     Route: 048
  4. FOSAMAX [Concomitant]
     Dosage: 5 MG, DAILY (1/D)
  5. VITAMIN D [Concomitant]
     Dosage: UNK, UNKNOWN
     Route: 048
  6. CALCIUM [Concomitant]
     Indication: BLOOD CALCIUM
     Dosage: UNK, UNKNOWN

REACTIONS (4)
  - Drug interaction [Unknown]
  - Torsade de pointes [Unknown]
  - Dizziness postural [Unknown]
  - Hot flush [Unknown]
